FAERS Safety Report 15879379 (Version 1)
Quarter: 2019Q1

REPORT INFORMATION
  Report Type: Spontaneous
  Country: US (occurrence: US)
  Receive Date: 20190126
  Receipt Date: 20190126
  Transmission Date: 20190417
  Serious: Yes (Other)
  Sender: FDA-Public Use
  Company Number: None

PATIENT
  Age: 57 Year
  Sex: Female
  Weight: 91.35 kg

DRUGS (1)
  1. BISACODYL (BISACODYL) [Suspect]
     Active Substance: BISACODYL
     Indication: COLONOSCOPY
     Dosage: ?          QUANTITY:20 TABLET(S);?
     Route: 048
     Dates: start: 20190124, end: 20190124

REACTIONS (5)
  - Urticaria [None]
  - Pruritus [None]
  - Pruritus generalised [None]
  - Erythema [None]
  - Drug hypersensitivity [None]

NARRATIVE: CASE EVENT DATE: 20190124
